FAERS Safety Report 8118238 (Version 4)
Quarter: 2012Q4

REPORT INFORMATION
  Report Type: Report from Study
  Country: US (occurrence: US)
  Receive Date: 20110902
  Receipt Date: 20121016
  Transmission Date: 20130627
  Serious: Yes (Hospitalization)
  Sender: FDA-Public Use
  Company Number: US-ASTELLAS-2011US005468

PATIENT
  Age: 86 Year
  Sex: Male
  Weight: 83 kg

DRUGS (6)
  1. BLINDED ERLOTINIB TABLET [Suspect]
     Indication: LUNG ADENOCARCINOMA
     Dosage: 150 mg, UID/QD
     Route: 048
     Dates: start: 20110419, end: 20110427
  2. PHENERGAN [Concomitant]
     Indication: NAUSEA
     Dosage: 25 mg, Q6 hours
     Route: 065
  3. LORTAB [Concomitant]
     Indication: PAIN
     Dosage: 10/325, Q6 hours prn
     Route: 065
  4. ESOMEPRAZOLE [Concomitant]
     Indication: PRODUCT USED FOR UNKNOWN INDICATION
     Dosage: 20 mg, UID/QD
     Route: 048
  5. MIRALAX [Concomitant]
     Indication: CONSTIPATION
     Dosage: 17 g, UID/QD prn
     Route: 048
  6. PREDNISONE [Concomitant]
     Indication: PRODUCT USED FOR UNKNOWN INDICATION
     Dosage: 50 mg, UID/QD
     Route: 065

REACTIONS (8)
  - Chronic respiratory failure [Recovered/Resolved]
  - Hypoxia [Recovered/Resolved with Sequelae]
  - Gait disturbance [Unknown]
  - Urine output decreased [Unknown]
  - Dry skin [Unknown]
  - Skin exfoliation [Unknown]
  - Constipation [Unknown]
  - Decreased appetite [Unknown]
